FAERS Safety Report 15920770 (Version 2)
Quarter: 2020Q4

REPORT INFORMATION
  Report Type: Spontaneous
  Country: US (occurrence: US)
  Receive Date: 20190205
  Receipt Date: 20201126
  Transmission Date: 20210113
  Serious: Yes (Death, Hospitalization, Other)
  Sender: FDA-Public Use
  Company Number: US-GILEAD-2019-0387815

PATIENT
  Age: 52 Year
  Sex: Female

DRUGS (8)
  1. VIREAD [Suspect]
     Active Substance: TENOFOVIR DISOPROXIL FUMARATE
     Indication: HIV INFECTION
     Dosage: UNK
     Route: 048
     Dates: start: 2001
  2. METOPROLOL. [Concomitant]
     Active Substance: METOPROLOL
  3. TRUVADA [Suspect]
     Active Substance: EMTRICITABINE\TENOFOVIR DISOPROXIL FUMARATE
     Indication: HIV INFECTION
     Dosage: UNK
     Route: 048
     Dates: start: 2001
  4. VANCOMYCIN [Concomitant]
     Active Substance: VANCOMYCIN
  5. COMPLERA [Suspect]
     Active Substance: EMTRICITABINE\RILPIVIRINE HYDROCHLORIDE\TENOFOVIR DISOPROXIL FUMARATE
     Indication: HIV INFECTION
     Dosage: UNK
     Route: 048
     Dates: start: 2001
  6. LAMIVUDINE. [Concomitant]
     Active Substance: LAMIVUDINE
  7. STRIBILD [Suspect]
     Active Substance: COBICISTAT\ELVITEGRAVIR\EMTRICITABINE\TENOFOVIR DISOPROXIL FUMARATE
     Indication: HIV INFECTION
     Dosage: UNK
     Route: 048
     Dates: start: 2001
  8. ATRIPLA [Suspect]
     Active Substance: EFAVIRENZ\EMTRICITABINE\TENOFOVIR DISOPROXIL FUMARATE
     Indication: HIV INFECTION
     Dosage: UNK
     Route: 048
     Dates: start: 2001

REACTIONS (13)
  - Quality of life decreased [Unknown]
  - Anxiety [Not Recovered/Not Resolved]
  - Kidney infection [Recovered/Resolved]
  - Economic problem [Not Recovered/Not Resolved]
  - Fear [Unknown]
  - Renal failure [Fatal]
  - Chronic kidney disease [Unknown]
  - Nephropathy [Unknown]
  - Renal disorder [Unknown]
  - Pain [Not Recovered/Not Resolved]
  - End stage renal disease [Recovered/Resolved]
  - Emotional distress [Not Recovered/Not Resolved]
  - Anhedonia [Not Recovered/Not Resolved]

NARRATIVE: CASE EVENT DATE: 201512
